FAERS Safety Report 6524835-4 (Version None)
Quarter: 2010Q1

REPORT INFORMATION
  Report Type: 
  Country: None (occurrence: None)
  Receive Date: 20100104
  Receipt Date: 20091221
  Transmission Date: 20100710
  Serious: Yes (Other)
  Sender: FDA-Public Use
  Company Number: PHHY2009US57967

PATIENT
  Sex: Male
  Weight: 161.6 kg

DRUGS (4)
  1. EXJADE [Suspect]
     Indication: IRON OVERLOAD
     Dosage: 1500 MG, UNK
     Dates: start: 20090401, end: 20091202
  2. EXJADE [Suspect]
     Dosage: 500 MG, UNK
     Route: 048
     Dates: start: 20091218
  3. VITAMIN B-12 [Concomitant]
     Indication: VITAMIN B12 DEFICIENCY
     Dosage: 1000 UG, UNK
     Route: 030
     Dates: start: 20041001
  4. FOLIC ACID [Concomitant]
     Dosage: 1 MG DAILY
     Route: 048
     Dates: start: 20090201

REACTIONS (4)
  - BLOOD CREATININE ABNORMAL [None]
  - BLOOD PRESSURE SYSTOLIC INCREASED [None]
  - HAEMOGLOBIN DECREASED [None]
  - RENAL IMPAIRMENT [None]
